FAERS Safety Report 7584890-X (Version None)
Quarter: 2011Q2

REPORT INFORMATION
  Report Type: 
  Country: None (occurrence: None)
  Receive Date: 20110630
  Receipt Date: 20110622
  Transmission Date: 20111010
  Serious: Yes (Hospitalization, Other)
  Sender: FDA-Public Use
  Company Number: GB-ABBOTT-11P-167-0728386-00

PATIENT
  Age: 16 Year
  Sex: Male

DRUGS (10)
  1. DEPAKOTE [Suspect]
     Route: 048
     Dates: start: 20091101
  2. ARIPIPRAZOLE [Concomitant]
     Indication: PRODUCT USED FOR UNKNOWN INDICATION
     Dates: start: 20080801
  3. CLOZAPINE [Suspect]
     Dates: start: 20090223, end: 20090402
  4. PROCYCLIDINE HYDROCHLORIDE 2MG TAB [Concomitant]
     Indication: PRODUCT USED FOR UNKNOWN INDICATION
  5. CLOZAPINE [Suspect]
     Indication: SCHIZOPHRENIA
     Dates: start: 20080128, end: 20080812
  6. MIRTAZAPINE [Concomitant]
     Indication: PRODUCT USED FOR UNKNOWN INDICATION
     Dates: end: 20080801
  7. DEPAKOTE [Suspect]
     Indication: PRODUCT USED FOR UNKNOWN INDICATION
     Dosage: 1750 MG, DAILY
     Route: 048
     Dates: start: 20081001, end: 20091101
  8. AMISULPRIDE [Suspect]
     Indication: PRODUCT USED FOR UNKNOWN INDICATION
     Dates: start: 20090101, end: 20090901
  9. DIAZEPAM [Concomitant]
     Indication: PRODUCT USED FOR UNKNOWN INDICATION
     Dates: start: 20080812
  10. OLANZAPINE [Concomitant]
     Indication: PRODUCT USED FOR UNKNOWN INDICATION
     Dates: start: 20090401

REACTIONS (15)
  - HYPOMANIA [None]
  - NEUTROPENIA [None]
  - WHITE BLOOD CELL COUNT DECREASED [None]
  - ANTISOCIAL BEHAVIOUR [None]
  - CHOLINERGIC SYNDROME [None]
  - BLOOD PROLACTIN INCREASED [None]
  - PHYSICAL ASSAULT [None]
  - AGITATION [None]
  - HYPERHIDROSIS [None]
  - DIARRHOEA [None]
  - VOMITING [None]
  - ELECTROCARDIOGRAM ABNORMAL [None]
  - EXTRAPYRAMIDAL DISORDER [None]
  - DISINHIBITION [None]
  - WHITE BLOOD CELL COUNT INCREASED [None]
